FAERS Safety Report 17405428 (Version 1)
Quarter: 2020Q1

REPORT INFORMATION
  Report Type: Spontaneous
  Country: US (occurrence: US)
  Receive Date: 20200127
  Receipt Date: 20200127
  Transmission Date: 20200409
  Serious: Yes (Hospitalization)
  Sender: FDA-Public Use
  Company Number: None

PATIENT
  Age: 39 Year
  Sex: Female

DRUGS (7)
  1. SUMATRIPTAN. [Concomitant]
     Active Substance: SUMATRIPTAN
  2. NORDITROPIN [Suspect]
     Active Substance: SOMATROPIN
     Indication: HYPOTHALAMO-PITUITARY DISORDER
     Dosage: ?          OTHER DOSE:10MG/1.5ML;?
     Route: 058
     Dates: start: 20190326
  3. OMNITROPE [Suspect]
     Active Substance: SOMATROPIN
     Indication: DWARFISM
     Dosage: ?          OTHER DOSE:10MG/1.5ML;?
     Route: 058
     Dates: start: 20200124
  4. ZOFRN [Concomitant]
  5. TRAMADOL HCL [Concomitant]
     Active Substance: TRAMADOL HYDROCHLORIDE
  6. FLUDROCORT [Concomitant]
  7. VALACYLOVIR TAB [Concomitant]

REACTIONS (3)
  - Insomnia [None]
  - Fatigue [None]
  - Confusional state [None]
